FAERS Safety Report 26141912 (Version 1)
Quarter: 2025Q4

REPORT INFORMATION
  Report Type: Spontaneous
  Country: EU (occurrence: EU)
  Receive Date: 20251210
  Receipt Date: 20251210
  Transmission Date: 20260118
  Serious: Yes (Death)
  Sender: ALEXION PHARMACEUTICALS
  Company Number: EU-AstraZeneca-CH-01008234A

PATIENT
  Age: 70 Year
  Sex: Male

DRUGS (1)
  1. ACALABRUTINIB [Suspect]
     Active Substance: ACALABRUTINIB
     Indication: Chronic lymphocytic leukaemia
     Dosage: UNK
     Route: 065

REACTIONS (5)
  - Anaemia [Fatal]
  - Thrombocytopenia [Fatal]
  - Infection [Fatal]
  - Enterococcal infection [Fatal]
  - Pneumothorax spontaneous [Fatal]
